FAERS Safety Report 19728512 (Version 1)
Quarter: 2021Q3

REPORT INFORMATION
  Report Type: Spontaneous
  Country: CN (occurrence: CN)
  Receive Date: 20210820
  Receipt Date: 20210820
  Transmission Date: 20211014
  Serious: Yes (Other)
  Sender: FDA-Public Use
  Company Number: CN-PFIZER INC-202101042154

PATIENT
  Age: 57 Year
  Sex: Male
  Weight: 70 kg

DRUGS (1)
  1. CYTOSAR [Suspect]
     Active Substance: CYTARABINE
     Indication: CHEMOTHERAPY
     Dosage: 3 G, 2X/DAY
     Route: 041
     Dates: start: 20210806, end: 20210808

REACTIONS (2)
  - Eructation [Recovering/Resolving]
  - Hiccups [Recovering/Resolving]

NARRATIVE: CASE EVENT DATE: 20210808
